FAERS Safety Report 22304854 (Version 1)
Quarter: 2023Q2

REPORT INFORMATION
  Report Type: Spontaneous
  Country: US (occurrence: US)
  Receive Date: 20230510
  Receipt Date: 20230510
  Transmission Date: 20230722
  Serious: No
  Sender: FDA-Public Use
  Company Number: US-AMGEN-USASP2023078156

PATIENT
  Age: 19 Year
  Sex: Male

DRUGS (1)
  1. TAVNEOS [Suspect]
     Active Substance: AVACOPAN
     Indication: Granulomatosis with polyangiitis
     Dosage: 30 MILLIGRAM, BID
     Route: 065
     Dates: start: 20221219

REACTIONS (3)
  - COVID-19 [Recovered/Resolved]
  - Sensory disturbance [Unknown]
  - Palpitations [Unknown]

NARRATIVE: CASE EVENT DATE: 20230301
